FAERS Safety Report 10209594 (Version 2)
Quarter: 2014Q2

REPORT INFORMATION
  Report Type: Spontaneous
  Country: US (occurrence: US)
  Receive Date: 20140602
  Receipt Date: 20140616
  Transmission Date: 20141212
  Serious: No
  Sender: FDA-Public Use
  Company Number: US-009507513-1405USA014678

PATIENT
  Sex: Female

DRUGS (5)
  1. FOLLISTIM [Suspect]
     Indication: INFERTILITY
     Dosage: 300 IU, UNK
  2. GONADOTROPIN, CHORIONIC [Suspect]
     Indication: INFERTILITY
     Dosage: 3,696+_728 IU, UNK
  3. GONAL-F [Suspect]
     Indication: INFERTILITY
     Dosage: 300 IU, UNK
  4. MENOPUR [Suspect]
     Indication: INFERTILITY
     Dosage: 150 IU, UNK
  5. GANIRELIX ACETATE INJECTION [Suspect]
     Indication: INFERTILITY
     Dosage: 0.25 MG, UNK

REACTIONS (1)
  - Exposure during pregnancy [Unknown]
